FAERS Safety Report 9825981 (Version 2)
Quarter: 2014Q1

REPORT INFORMATION
  Report Type: Spontaneous
  Country: US (occurrence: US)
  Receive Date: 20140117
  Receipt Date: 20140127
  Transmission Date: 20141002
  Serious: Yes (Other)
  Sender: FDA-Public Use
  Company Number: US-BAYER-2014-006911

PATIENT
  Age: 71 Year
  Sex: Female

DRUGS (2)
  1. MAGNEVIST [Suspect]
     Indication: NUCLEAR MAGNETIC RESONANCE IMAGING BRAIN
     Dosage: 15 ML, UNK
     Route: 042
     Dates: start: 20140113
  2. MAGNEVIST [Suspect]
     Indication: HYPOAESTHESIA

REACTIONS (4)
  - Tension headache [Recovered/Resolved]
  - Headache [Recovered/Resolved]
  - Sensation of pressure [Recovered/Resolved]
  - Anxiety [None]
